FAERS Safety Report 4895206-1 (Version None)
Quarter: 2006Q1

REPORT INFORMATION
  Report Type: 
  Country: None (occurrence: None)
  Receive Date: 20060119
  Receipt Date: 20060113
  Transmission Date: 20060701
  Serious: Yes (Death)
  Sender: FDA-Public Use
  Company Number: 200511146BVD

PATIENT
  Sex: Female
  Weight: 73 kg

DRUGS (7)
  1. GAMUNEX [Suspect]
     Indication: IDIOPATHIC THROMBOCYTOPENIC PURPURA
     Dosage: SEE IMAGE, INTRAVENOUS
     Route: 042
     Dates: start: 20050531
  2. GAMUNEX [Suspect]
     Indication: IDIOPATHIC THROMBOCYTOPENIC PURPURA
     Dosage: SEE IMAGE, INTRAVENOUS
     Route: 042
     Dates: start: 20050601
  3. GAMUNEX [Suspect]
     Indication: IDIOPATHIC THROMBOCYTOPENIC PURPURA
     Dosage: SEE IMAGE, INTRAVENOUS
     Route: 042
     Dates: start: 20050822
  4. GAMUNEX [Suspect]
     Indication: IDIOPATHIC THROMBOCYTOPENIC PURPURA
     Dosage: SEE IMAGE, INTRAVENOUS
     Route: 042
     Dates: start: 20050826
  5. GAMUNEX [Suspect]
  6. GAMUNEX [Suspect]
  7. GAMUNEX [Suspect]

REACTIONS (1)
  - DEATH [None]
